FAERS Safety Report 4738012-0 (Version None)
Quarter: 2005Q3

REPORT INFORMATION
  Report Type: 
  Country: None (occurrence: None)
  Receive Date: 20050809
  Receipt Date: 20050802
  Transmission Date: 20060218
  Serious: Yes (Other)
  Sender: FDA-Public Use
  Company Number: PHEH2005US08518

PATIENT
  Age: 13 Year
  Sex: Male

DRUGS (2)
  1. TRILEPTAL [Suspect]
     Indication: BIPOLAR DISORDER
     Dosage: 450 MG, BID
     Route: 048
  2. SEROQUEL [Concomitant]
     Indication: BIPOLAR DISORDER
     Dosage: 75 MG, QD

REACTIONS (2)
  - THYROXINE DECREASED [None]
  - TRI-IODOTHYRONINE DECREASED [None]
